FAERS Safety Report 7293188-9 (Version None)
Quarter: 2011Q1

REPORT INFORMATION
  Report Type: 
  Country: None (occurrence: None)
  Receive Date: 20110203
  Receipt Date: 20110118
  Transmission Date: 20110831
  Serious: Yes (Death)
  Sender: FDA-Public Use
  Company Number: B0694990A

PATIENT
  Age: 76 Year
  Sex: Female

DRUGS (4)
  1. QUETIAPINE [Suspect]
     Dosage: ORAL
     Route: 048
  2. BENAZEPRIL HYDROCHLORIDE [Suspect]
     Dosage: ORAL
     Route: 048
  3. DYNACIRC (FORMULATION UNKNOWN) (ISRADIPINE) [Suspect]
     Dosage: ORAL
     Route: 048
  4. CLONAZEPAM [Suspect]
     Dosage: ORAL
     Route: 048

REACTIONS (2)
  - COMPLETED SUICIDE [None]
  - CARDIO-RESPIRATORY ARREST [None]
